FAERS Safety Report 5401527-6 (Version None)
Quarter: 2007Q3

REPORT INFORMATION
  Report Type: 
  Country: None (occurrence: None)
  Receive Date: 20070731
  Receipt Date: 20070719
  Transmission Date: 20080115
  Serious: Yes (Other)
  Sender: FDA-Public Use
  Company Number: HU-ROCHE-508105

PATIENT
  Age: 63 Year
  Sex: Female

DRUGS (3)
  1. BONIVA [Suspect]
     Indication: OSTEOPOROSIS
     Route: 048
     Dates: start: 20060101, end: 20070501
  2. BONIVA [Suspect]
     Route: 042
     Dates: start: 20070518
  3. NORVASC [Concomitant]
     Dates: start: 20061201

REACTIONS (3)
  - AGEUSIA [None]
  - GUSTOMETRY ABNORMAL [None]
  - NAUSEA [None]
